FAERS Safety Report 20240297 (Version 1)
Quarter: 2021Q4

REPORT INFORMATION
  Report Type: Spontaneous
  Country: NO (occurrence: NO)
  Receive Date: 20211228
  Receipt Date: 20211228
  Transmission Date: 20220303
  Serious: Yes (Other)
  Sender: FDA-Public Use
  Company Number: NO-BAYER-2021A271316

PATIENT
  Sex: Male

DRUGS (1)
  1. XOFIGO [Suspect]
     Active Substance: RADIUM RA-223 DICHLORIDE

REACTIONS (12)
  - Spinal compression fracture [None]
  - Neurological symptom [None]
  - Transient ischaemic attack [None]
  - Cerebrovascular accident [None]
  - Neurogenic bladder [None]
  - Neurogenic bowel [None]
  - General physical health deterioration [None]
  - Mobility decreased [None]
  - Muscular weakness [None]
  - Pain [None]
  - Decreased appetite [None]
  - Weight decreased [None]
